FAERS Safety Report 6359840-4 (Version None)
Quarter: 2009Q3

REPORT INFORMATION
  Report Type: 
  Country: None (occurrence: None)
  Receive Date: 20090917
  Receipt Date: 20090907
  Transmission Date: 20100115
  Serious: Yes (Congenital Anomaly)
  Sender: FDA-Public Use
  Company Number: B0558346A

PATIENT
  Sex: Male

DRUGS (2)
  1. LAMICTAL [Suspect]
     Indication: EPILEPSY
     Dosage: 100MG PER DAY
  2. FOLIC ACID [Concomitant]

REACTIONS (2)
  - CONGENITAL CYSTIC LUNG [None]
  - DRUG EXPOSURE DURING PREGNANCY [None]
